FAERS Safety Report 9065713 (Version 1)
Quarter: 2013Q1

REPORT INFORMATION
  Report Type: Report from Study
  Country: US (occurrence: US)
  Receive Date: 20130131
  Receipt Date: 20130131
  Transmission Date: 20140127
  Serious: Yes (Other)
  Sender: FDA-Public Use
  Company Number: US-ABBOTT-12P-163-0918872-00

PATIENT
  Age: 26 Year
  Sex: Female

DRUGS (3)
  1. HUMIRA 40 MG/ 0.8 ML PRE-FILLED SYRINGE [Suspect]
     Indication: PSORIASIS
     Dates: start: 2007, end: 20120227
  2. UNKNOWN MEDICATION [Concomitant]
     Indication: BLOOD TRIGLYCERIDES ABNORMAL
  3. UNKNOWN MEDICATION [Concomitant]
     Indication: BLOOD GLUCOSE ABNORMAL

REACTIONS (5)
  - Pancreatitis [Unknown]
  - Abdominal pain [Recovering/Resolving]
  - Pyrexia [Recovering/Resolving]
  - Gallbladder disorder [Unknown]
  - Cholelithiasis [Unknown]
